FAERS Safety Report 5721028-5 (Version None)
Quarter: 2008Q2

REPORT INFORMATION
  Report Type: 
  Country: None (occurrence: None)
  Receive Date: 20080425
  Receipt Date: 20080420
  Transmission Date: 20081010
  Serious: Yes (Other)
  Sender: FDA-Public Use
  Company Number: CHPA2008US06929

PATIENT
  Age: 70 Year
  Sex: Female

DRUGS (4)
  1. MAALOX MS TOTAL STOMACH RELIEF (NCH) (BISMUTH SUBSALICYLATE) SUSPENSIO [Suspect]
     Indication: STOMACH DISCOMFORT
     Dosage: 6 TSP, Q4H, ORAL
     Route: 048
     Dates: start: 20080414
  2. LISINOPRIL (LISINOPROL) [Concomitant]
  3. LIPITOR /NET/ (ATORVASTATIN CALCIUM) [Concomitant]
  4. HYDROCHLOROTHIAZIDE [Concomitant]

REACTIONS (2)
  - FAECES DISCOLOURED [None]
  - MELAENA [None]
